FAERS Safety Report 18446832 (Version 1)
Quarter: 2020Q4

REPORT INFORMATION
  Report Type: Spontaneous
  Country: US (occurrence: US)
  Receive Date: 20201030
  Receipt Date: 20201030
  Transmission Date: 20210114
  Serious: Yes (Hospitalization)
  Sender: FDA-Public Use
  Company Number: None

PATIENT
  Age: 48 Year
  Sex: Male
  Weight: 88.65 kg

DRUGS (3)
  1. PREDNISONE. [Concomitant]
     Active Substance: PREDNISONE
  2. REMICADE [Suspect]
     Active Substance: INFLIXIMAB
     Indication: COLITIS ULCERATIVE
     Route: 042
     Dates: start: 20200924, end: 20201029
  3. DIFICID [Concomitant]
     Active Substance: FIDAXOMICIN

REACTIONS (7)
  - Swelling face [None]
  - Chills [None]
  - Tremor [None]
  - Blood pressure increased [None]
  - Back pain [None]
  - Chest pain [None]
  - Heart rate increased [None]

NARRATIVE: CASE EVENT DATE: 20201029
